FAERS Safety Report 4446140-2 (Version None)
Quarter: 2004Q3

REPORT INFORMATION
  Report Type: 
  Country: None (occurrence: None)
  Receive Date: 20040907
  Receipt Date: 20040827
  Transmission Date: 20050211
  Serious: Yes (Hospitalization)
  Sender: FDA-Public Use
  Company Number: FR-ROCHE-378900

PATIENT
  Age: 18 Year
  Sex: Female

DRUGS (2)
  1. RIVOTRIL [Suspect]
     Indication: DRUG USE FOR UNKNOWN INDICATION
     Route: 048
     Dates: start: 20040611, end: 20040611
  2. ACETAMINOPHEN AND TRAMADOL HCL [Suspect]
     Indication: DRUG USE FOR UNKNOWN INDICATION
     Route: 048
     Dates: start: 20040611, end: 20040611

REACTIONS (5)
  - ANION GAP DECREASED [None]
  - HYPOKALAEMIA [None]
  - MULTIPLE DRUG OVERDOSE INTENTIONAL [None]
  - OVERDOSE [None]
  - SOMNOLENCE [None]
